FAERS Safety Report 7344003-6 (Version None)
Quarter: 2011Q1

REPORT INFORMATION
  Report Type: 
  Country: None (occurrence: None)
  Receive Date: 20110310
  Receipt Date: 20100414
  Transmission Date: 20110831
  Serious: No
  Sender: FDA-Public Use
  Company Number: A0855076A

PATIENT
  Age: 25 Year
  Sex: Female

DRUGS (1)
  1. NICORETTE [Suspect]
     Route: 002

REACTIONS (4)
  - DRUG INEFFECTIVE [None]
  - INSOMNIA [None]
  - HEADACHE [None]
  - PYREXIA [None]
